FAERS Safety Report 11681654 (Version 1)
Quarter: 2015Q4

REPORT INFORMATION
  Report Type: Spontaneous
  Country: US (occurrence: None)
  Receive Date: 20151028
  Receipt Date: 20151028
  Transmission Date: 20160304
  Serious: Yes (Other)
  Sender: FDA-Public Use
  Company Number: None

PATIENT
  Age: 56 Year
  Sex: Female
  Weight: 72.58 kg

DRUGS (3)
  1. HYDROCODONE 10/325 [Suspect]
     Active Substance: HYDROCODONE
     Indication: MULTIPLE SCLEROSIS
     Dosage: YES 1G4  Q4
     Route: 048
  2. HYDROCODONE 10/325 [Suspect]
     Active Substance: HYDROCODONE
     Indication: NEUROPATHY PERIPHERAL
     Dosage: YES 1G4  Q4
     Route: 048
  3. HYDROCODONE 10/325 [Suspect]
     Active Substance: HYDROCODONE
     Indication: RHEUMATOID ARTHRITIS
     Dosage: YES 1G4  Q4
     Route: 048

REACTIONS (9)
  - Ear pruritus [None]
  - Product substitution issue [None]
  - Product contamination microbial [None]
  - Dyspnoea [None]
  - Throat irritation [None]
  - Pruritus [None]
  - Acarodermatitis [None]
  - Lip pruritus [None]
  - Rash [None]

NARRATIVE: CASE EVENT DATE: 20151024
